FAERS Safety Report 7515911-8 (Version None)
Quarter: 2011Q2

REPORT INFORMATION
  Report Type: 
  Country: None (occurrence: None)
  Receive Date: 20110601
  Receipt Date: 20110526
  Transmission Date: 20111010
  Serious: No
  Sender: FDA-Public Use
  Company Number: US-PFIZER INC-2011115306

PATIENT
  Sex: Female

DRUGS (1)
  1. PRISTIQ [Suspect]
     Dosage: 50 MG, UNK
     Dates: start: 20110201, end: 20110201

REACTIONS (2)
  - FEELING ABNORMAL [None]
  - PALPITATIONS [None]
